FAERS Safety Report 23962313 (Version 3)
Quarter: 2024Q4

REPORT INFORMATION
  Report Type: Spontaneous
  Country: CN (occurrence: CN)
  Receive Date: 20240611
  Receipt Date: 20241223
  Transmission Date: 20250115
  Serious: Yes (Hospitalization)
  Sender: JOHNSON AND JOHNSON
  Company Number: CN-JNJFOC-20240613587

PATIENT
  Age: 40 Year
  Sex: Female
  Weight: 62 kg

DRUGS (2)
  1. ACETAMINOPHEN [Suspect]
     Active Substance: ACETAMINOPHEN
     Indication: Upper respiratory tract infection
     Dates: start: 20240130, end: 20240130
  2. RIBAVIRIN [Suspect]
     Active Substance: RIBAVIRIN
     Indication: Upper respiratory tract infection
     Dosage: 3 DOSAGE FORM
     Dates: start: 20240130, end: 20240130

REACTIONS (2)
  - Inappropriate schedule of product administration [Recovered/Resolved]
  - Rash [Recovered/Resolved]

NARRATIVE: CASE EVENT DATE: 20240130
